FAERS Safety Report 7473986-9 (Version None)
Quarter: 2011Q2

REPORT INFORMATION
  Report Type: 
  Country: None (occurrence: None)
  Receive Date: 20110511
  Receipt Date: 20090112
  Transmission Date: 20111010
  Serious: Yes (Other)
  Sender: FDA-Public Use
  Company Number: US-BAYER-200910319NA

PATIENT
  Age: 79 Year
  Sex: Female
  Weight: 47 kg

DRUGS (12)
  1. AMICAR [Concomitant]
     Indication: CORONARY ARTERY BYPASS
  2. PROTAMINE SULFATE [Concomitant]
     Dosage: UNK
     Route: 042
     Dates: start: 20061109
  3. HUMULIN [INSULIN HUMAN] [Concomitant]
     Route: 042
  4. DIGOXIN [Concomitant]
     Dosage: 0.05 MG, QD
     Route: 048
  5. TRASYLOL [Suspect]
     Indication: PRODUCT USED FOR UNKNOWN INDICATION
     Route: 042
     Dates: start: 20051110
  6. METFORMIN HCL [Concomitant]
     Dosage: 500 MG, QD
     Route: 048
     Dates: start: 20010401, end: 20061101
  7. COREG [Concomitant]
     Dosage: 25 MG, BID
     Route: 048
     Dates: start: 20010401, end: 20061101
  8. ZESTRIL [Concomitant]
     Dosage: 5 MG, QD
     Route: 048
  9. PRAVACHOL [Concomitant]
     Dosage: 20 MG, QD
     Route: 048
  10. AMICAR [Concomitant]
     Indication: AORTIC VALVE REPLACEMENT
     Dosage: AMICAR GIVEN AT 5 ML/ HOUR FOR ONE HALF HOUR.
     Route: 042
     Dates: start: 20061109
  11. HEPARIN [Concomitant]
     Dosage: 30000 U, UNK
     Route: 042
     Dates: start: 20061109
  12. AMIODARONE HCL [Concomitant]
     Dosage: 450 MG, UNK
     Route: 042

REACTIONS (12)
  - RENAL IMPAIRMENT [None]
  - FEAR [None]
  - INJURY [None]
  - RENAL INJURY [None]
  - ANHEDONIA [None]
  - STRESS [None]
  - EMOTIONAL DISTRESS [None]
  - RENAL FAILURE [None]
  - ANXIETY [None]
  - SEPSIS [None]
  - PAIN [None]
  - UNEVALUABLE EVENT [None]
